FAERS Safety Report 18494724 (Version 1)
Quarter: 2020Q4

REPORT INFORMATION
  Report Type: Spontaneous
  Country: RU (occurrence: RU)
  Receive Date: 20201112
  Receipt Date: 20201112
  Transmission Date: 20210114
  Serious: Yes (Death, Hospitalization, Other)
  Sender: FDA-Public Use
  Company Number: RU-009507513-2011RUS005032

PATIENT
  Age: 66 Year
  Sex: Male

DRUGS (6)
  1. KEYTRUDA [Suspect]
     Active Substance: PEMBROLIZUMAB
     Indication: OROPHARYNGEAL CANCER STAGE I
     Dosage: 200 MILLIGRAM, Q3W
     Dates: start: 20200609
  2. CARBOPLATIN. [Concomitant]
     Active Substance: CARBOPLATIN
     Indication: ADENOSQUAMOUS CELL LUNG CANCER STAGE IV
  3. PACLITAXEL. [Concomitant]
     Active Substance: PACLITAXEL
     Indication: ADENOSQUAMOUS CELL LUNG CANCER STAGE IV
  4. PACLITAXEL. [Concomitant]
     Active Substance: PACLITAXEL
     Indication: OROPHARYNGEAL CANCER STAGE I
     Dosage: 175MG / M2
     Dates: start: 20200609
  5. KEYTRUDA [Suspect]
     Active Substance: PEMBROLIZUMAB
     Indication: ADENOSQUAMOUS CELL LUNG CANCER STAGE IV
     Dosage: 200 MILLIGRAM, CYCLICAL
     Dates: start: 2020
  6. CARBOPLATIN. [Concomitant]
     Active Substance: CARBOPLATIN
     Indication: OROPHARYNGEAL CANCER STAGE I
     Dosage: AUC5, Q3W
     Dates: start: 20200609

REACTIONS (7)
  - Malignant neoplasm progression [Fatal]
  - General physical health deterioration [Fatal]
  - Blood urea increased [Fatal]
  - Blood creatinine abnormal [Fatal]
  - Hydrothorax [Unknown]
  - Oxygen saturation abnormal [Fatal]
  - Pericardial effusion [Unknown]

NARRATIVE: CASE EVENT DATE: 2020
